FAERS Safety Report 5909262-2 (Version None)
Quarter: 2008Q4

REPORT INFORMATION
  Report Type: 
  Country: None (occurrence: None)
  Receive Date: 20081006
  Receipt Date: 20081003
  Transmission Date: 20090506
  Serious: Yes (Death)
  Sender: FDA-Public Use
  Company Number: PHHY2008JP17176

PATIENT
  Age: 57 Year
  Sex: Male

DRUGS (8)
  1. NEORAL [Suspect]
     Indication: INTERSTITIAL LUNG DISEASE
     Route: 048
  2. METHYLPREDNISOLONE [Concomitant]
     Dosage: 1 G/DAY
     Route: 065
     Dates: start: 20080408, end: 20080410
  3. METHYLPREDNISOLONE [Concomitant]
     Dosage: 1 G/DAY
     Route: 065
  4. METHYLPREDNISOLONE [Concomitant]
     Dosage: 1 G/DAY
     Route: 065
  5. COTRIM [Concomitant]
     Dosage: 12 DF, UNK
     Route: 048
  6. IMMUNE GLOBULIN INTRAVENOUS (HUMAN) [Concomitant]
     Dosage: 0.4 G, UNK
     Route: 042
  7. ENDOXAN [Concomitant]
     Dosage: 750 MG, UNK
     Route: 048
  8. PROGRAF [Concomitant]
     Route: 048

REACTIONS (3)
  - BLOOD BETA-D-GLUCAN INCREASED [None]
  - DISEASE PROGRESSION [None]
  - INTERSTITIAL LUNG DISEASE [None]
